FAERS Safety Report 17800194 (Version 3)
Quarter: 2020Q2

REPORT INFORMATION
  Report Type: Report from Study
  Country: US (occurrence: US)
  Receive Date: 20200518
  Receipt Date: 20200610
  Transmission Date: 20200714
  Serious: No
  Sender: FDA-Public Use
  Company Number: US-ACTELION-A-NJ2020-204614

PATIENT
  Age: 73 Year
  Sex: Female
  Weight: 103.4 kg

DRUGS (4)
  1. OPSUMIT [Suspect]
     Active Substance: MACITENTAN
     Indication: PULMONARY ARTERIAL HYPERTENSION
     Dosage: 10 MG, OD
     Route: 048
     Dates: start: 202003
  2. SILDENAFIL. [Concomitant]
     Active Substance: SILDENAFIL
     Dosage: 20 MG, BID
  3. TYVASO [Suspect]
     Active Substance: TREPROSTINIL
     Indication: PRODUCT USED FOR UNKNOWN INDICATION
     Dosage: 6 BREATHS PER TREATMENT
     Route: 048
  4. FUROSEMIDE. [Concomitant]
     Active Substance: FUROSEMIDE
     Dosage: 20 MG, QD

REACTIONS (7)
  - Pruritus [Unknown]
  - Swelling [Unknown]
  - Headache [Recovered/Resolved]
  - Anxiety [Unknown]
  - Livedo reticularis [Unknown]
  - Gait disturbance [Unknown]
  - Skin irritation [Unknown]

NARRATIVE: CASE EVENT DATE: 20200413
